FAERS Safety Report 7353042-0 (Version None)
Quarter: 2011Q1

REPORT INFORMATION
  Report Type: 
  Country: None (occurrence: None)
  Receive Date: 20110315
  Receipt Date: 20101021
  Transmission Date: 20110831
  Serious: Yes (Hospitalization)
  Sender: FDA-Public Use
  Company Number: B0690994A

PATIENT
  Sex: Female

DRUGS (4)
  1. LAMICTAL [Suspect]
     Indication: EPILEPSY
     Dosage: 120MG PER DAY
     Route: 048
     Dates: start: 20090511, end: 20090709
  2. GABAPEN [Concomitant]
     Indication: CONVULSION
     Dosage: 800MG PER DAY
     Route: 048
     Dates: start: 20080501
  3. PHENOBAL [Concomitant]
     Indication: CONVULSION
     Dosage: 100MG PER DAY
     Route: 048
  4. TEGRETOL [Concomitant]
     Indication: CONVULSION
     Dosage: 400MG PER DAY
     Route: 048

REACTIONS (3)
  - TACHYPNOEA [None]
  - AGITATION [None]
  - INSOMNIA [None]
